FAERS Safety Report 22258971 (Version 1)
Quarter: 2023Q2

REPORT INFORMATION
  Report Type: Spontaneous
  Country: CN (occurrence: CN)
  Receive Date: 20230427
  Receipt Date: 20230427
  Transmission Date: 20230722
  Serious: Yes (Other)
  Sender: FDA-Public Use
  Company Number: CN-GLAXOSMITHKLINE-CNCH2023APC017726

PATIENT
  Age: 44 Year
  Sex: Male

DRUGS (3)
  1. VOLTAREN [Suspect]
     Active Substance: DICLOFENAC SODIUM
     Indication: Pain
     Dosage: 25 MG, BID
     Route: 048
     Dates: start: 20230318, end: 20230321
  2. DALTEPARIN SODIUM [Suspect]
     Active Substance: DALTEPARIN SODIUM
     Indication: Coagulopathy
     Dosage: 5000 IU, QD
     Route: 058
     Dates: start: 20230315, end: 20230321
  3. HEPARIN [Concomitant]
     Active Substance: HEPARIN SODIUM
     Indication: Product used for unknown indication
     Dosage: UNK
     Route: 065

REACTIONS (3)
  - Gastrointestinal haemorrhage [Recovered/Resolved]
  - Faeces discoloured [Recovered/Resolved]
  - Off label use [Unknown]

NARRATIVE: CASE EVENT DATE: 20230318
